FAERS Safety Report 12735594 (Version 1)
Quarter: 2016Q3

REPORT INFORMATION
  Report Type: Report from Study
  Country: IT (occurrence: IT)
  Receive Date: 20160913
  Receipt Date: 20160913
  Transmission Date: 20161109
  Serious: Yes (Other)
  Sender: FDA-Public Use
  Company Number: IT-AMGEN-ITANI2016122254

PATIENT
  Age: 64 Year
  Sex: Male

DRUGS (3)
  1. DEXMETHASONE [Concomitant]
     Active Substance: DEXAMETHASONE
     Indication: PLASMA CELL MYELOMA
     Dosage: 40 MG, QWK
     Route: 042
     Dates: start: 20160711, end: 20160801
  2. CARFILZOMIB [Suspect]
     Active Substance: CARFILZOMIB
     Indication: PLASMA CELL MYELOMA
     Dosage: 20 MG/M2, 2 TIMES/WK
     Route: 042
     Dates: start: 20160711
  3. REVLIMID [Concomitant]
     Active Substance: LENALIDOMIDE
     Indication: PLASMA CELL MYELOMA
     Dosage: 25 MG, 21 DAYS
     Route: 048
     Dates: start: 20160711, end: 20160726

REACTIONS (2)
  - Disease progression [Unknown]
  - Hyperviscosity syndrome [Unknown]

NARRATIVE: CASE EVENT DATE: 20160804
